FAERS Safety Report 24277841 (Version 1)
Quarter: 2024Q3

REPORT INFORMATION
  Report Type: Spontaneous
  Country: US (occurrence: None)
  Receive Date: 20240830
  Receipt Date: 20240830
  Transmission Date: 20241017
  Serious: Yes (Other)
  Sender: Public
  Company Number: None

PATIENT
  Age: 24 Year
  Sex: Male
  Weight: 94.5 kg

DRUGS (1)
  1. BACTRIM [Suspect]
     Active Substance: SULFAMETHOXAZOLE\TRIMETHOPRIM
     Indication: Prostate infection
     Dosage: OTHER QUANTITY : 1 TABLET(S);?FREQUENCY : EVERY 12 HOURS;?
     Route: 048
     Dates: start: 20240815, end: 20240828

REACTIONS (8)
  - Rash [None]
  - Burning sensation [None]
  - Pyrexia [None]
  - Chills [None]
  - Neuralgia [None]
  - Throat tightness [None]
  - Lymphadenopathy [None]
  - Vision blurred [None]

NARRATIVE: CASE EVENT DATE: 20240825
